FAERS Safety Report 10267410 (Version 1)
Quarter: 2014Q2

REPORT INFORMATION
  Report Type: Spontaneous
  Country: US (occurrence: US)
  Receive Date: 20140630
  Receipt Date: 20140630
  Transmission Date: 20141212
  Serious: Yes (Other)
  Sender: FDA-Public Use
  Company Number: US-MYLANLABS-2014S1014761

PATIENT
  Age: 60 Year
  Sex: Male

DRUGS (2)
  1. AZATHIOPRINE [Suspect]
     Indication: POLYCHONDRITIS
     Route: 065
  2. AZATHIOPRINE [Suspect]
     Indication: OFF LABEL USE
     Route: 065

REACTIONS (6)
  - Acute febrile neutrophilic dermatosis [Recovered/Resolved]
  - Rhinitis [Unknown]
  - Cough [Unknown]
  - Chills [Unknown]
  - Vision blurred [Unknown]
  - Malaise [Unknown]
